FAERS Safety Report 10743495 (Version 1)
Quarter: 2015Q1

REPORT INFORMATION
  Report Type: Spontaneous
  Country: BR (occurrence: BR)
  Receive Date: 20150128
  Receipt Date: 20150128
  Transmission Date: 20150721
  Serious: Yes (Death, Other)
  Sender: FDA-Public Use
  Company Number: BR-CIPLA LTD.-2015BR00586

PATIENT
  Age: 39 Year
  Sex: Male

DRUGS (10)
  1. PACLITAXEL. [Suspect]
     Active Substance: PACLITAXEL
     Indication: METASTASES TO BONE
  2. ETOPOSIDE. [Suspect]
     Active Substance: ETOPOSIDE
     Indication: UNDIFFERENTIATED NASOPHARYNGEAL CARCINOMA
     Dosage: UNK, SIX CYCLES
  3. CARBOPLATIN. [Suspect]
     Active Substance: CARBOPLATIN
     Indication: UNDIFFERENTIATED NASOPHARYNGEAL CARCINOMA
     Dosage: UNK, SIX CYCLES
  4. ETOPOSIDE. [Suspect]
     Active Substance: ETOPOSIDE
     Indication: METASTASES TO BONE
  5. GEMCITABINE [Suspect]
     Active Substance: GEMCITABINE\GEMCITABINE HYDROCHLORIDE
     Indication: UNDIFFERENTIATED NASOPHARYNGEAL CARCINOMA
     Dosage: 1250 MG/M2, ON DAY 1, DAY 8, AND DAY 15, EACH 28 DAYS
  6. CISPLATIN. [Suspect]
     Active Substance: CISPLATIN
     Indication: UNDIFFERENTIATED NASOPHARYNGEAL CARCINOMA
     Dosage: UNK, SIX CYCLES
  7. CISPLATIN. [Suspect]
     Active Substance: CISPLATIN
     Indication: METASTASES TO BONE
  8. PACLITAXEL. [Suspect]
     Active Substance: PACLITAXEL
     Indication: UNDIFFERENTIATED NASOPHARYNGEAL CARCINOMA
     Dosage: UNK, SIX CYCLES
  9. CARBOPLATIN. [Suspect]
     Active Substance: CARBOPLATIN
     Indication: METASTASES TO BONE
  10. GEMCITABINE [Suspect]
     Active Substance: GEMCITABINE\GEMCITABINE HYDROCHLORIDE
     Indication: METASTASES TO BONE

REACTIONS (6)
  - Thrombotic microangiopathy [Unknown]
  - Disease progression [Unknown]
  - Haemolytic anaemia [Unknown]
  - Death [Fatal]
  - Renal impairment [Unknown]
  - Shock [Unknown]
